FAERS Safety Report 12527067 (Version 1)
Quarter: 2016Q3

REPORT INFORMATION
  Report Type: Report from Study
  Country: GB (occurrence: GB)
  Receive Date: 20160705
  Receipt Date: 20160705
  Transmission Date: 20161109
  Serious: Yes (Death, Other)
  Sender: FDA-Public Use
  Company Number: GB-GLAXOSMITHKLINE-B0693161A

PATIENT
  Age: 34 Year
  Sex: Male
  Weight: 60 kg

DRUGS (13)
  1. ALFENTANIL. [Concomitant]
     Active Substance: ALFENTANIL
  2. CASPOFUNGIN ACETATE [Concomitant]
     Active Substance: CASPOFUNGIN ACETATE
  3. ATRACURIUM BESILATE [Concomitant]
     Active Substance: ATRACURIUM BESYLATE
  4. FRUSEMIDE [Concomitant]
     Active Substance: FUROSEMIDE
  5. ZANAMIVIR [Suspect]
     Active Substance: ZANAMIVIR
     Indication: INFLUENZA A VIRUS TEST POSITIVE
     Dosage: 1200 MG, QD
  6. CO-AMOXICLAV [Concomitant]
     Active Substance: AMOXICILLIN\CLAVULANIC ACID
  7. CLARITHROMYCIN. [Concomitant]
     Active Substance: CLARITHROMYCIN
  8. DIAMORPHINE HYDROCHLORIDE [Concomitant]
     Active Substance: DIACETYLMORPHINE HYDROCHLORIDE
  9. PROPOFOL. [Concomitant]
     Active Substance: PROPOFOL
  10. MEROPENEM TRIHYDRATE [Concomitant]
     Active Substance: MEROPENEM
  11. FRAGMIN [Concomitant]
     Active Substance: DALTEPARIN SODIUM
  12. BENZYLPENICILLIN [Concomitant]
     Active Substance: PENICILLIN G
  13. TAZOCIN [Concomitant]
     Active Substance: PIPERACILLIN SODIUM\TAZOBACTAM SODIUM

REACTIONS (2)
  - Multiple organ dysfunction syndrome [Fatal]
  - Respiratory failure [Not Recovered/Not Resolved]
